FAERS Safety Report 8290515 (Version 3)
Quarter: 2013Q2

REPORT INFORMATION
  Report Type: Spontaneous
  Country: US (occurrence: None)
  Receive Date: 20111122
  Receipt Date: 20130107
  Transmission Date: 20140414
  Serious: Yes (Other)
  Sender: FDA-Public Use
  Company Number: PHHY2011US65322

PATIENT
  Age: 39 Year
  Sex: Male
  Weight: 109 kg

DRUGS (5)
  1. GILENYA [Suspect]
     Indication: RELAPSING-REMITTING MULTIPLE SCLEROSIS
     Dosage: 0.5 MG, QD, ORAL
     Route: 048
     Dates: start: 20110706, end: 20110723
  2. ZOVIRAX [Concomitant]
  3. CIPROFLOXACIN [Concomitant]
  4. BORAGE OIL [Concomitant]
  5. MULTIVITAMINS [Concomitant]

REACTIONS (4)
  - HERPES ZOSTER [None]
  - BLOOD PRESSURE INCREASED [None]
  - Photosensitivity reaction [None]
  - HEART RATE DECREASED [None]
